FAERS Safety Report 8578532-4 (Version None)
Quarter: 2012Q3

REPORT INFORMATION
  Report Type: 
  Country: None (occurrence: None)
  Receive Date: 20120731
  Receipt Date: 20120731
  Transmission Date: 20120928
  Serious: No
  Sender: FDA-Public Use
  Company Number: None

PATIENT
  Sex: Female
  Weight: 57.1532 kg

DRUGS (1)
  1. ACETAMINOPHEN [Suspect]
     Indication: ARTHRITIS
     Dosage: 1,000 MG 1-3/D PO
     Route: 048

REACTIONS (3)
  - OESOPHAGEAL PAIN [None]
  - EATING DISORDER [None]
  - PRODUCT SUBSTITUTION ISSUE [None]
